FAERS Safety Report 12109726 (Version 1)
Quarter: 2016Q1

REPORT INFORMATION
  Report Type: Spontaneous
  Country: US (occurrence: US)
  Receive Date: 20160224
  Receipt Date: 20160224
  Transmission Date: 20160526
  Serious: Yes (Other)
  Sender: FDA-Public Use
  Company Number: US-FRI-1000076296

PATIENT
  Age: 61 Year
  Sex: Female

DRUGS (1)
  1. VIIBRYD [Suspect]
     Active Substance: VILAZODONE HYDROCHLORIDE
     Dates: start: 20141205, end: 20141205

REACTIONS (3)
  - Palpitations [Recovered/Resolved]
  - Suicidal ideation [Recovered/Resolved]
  - Nervousness [Recovered/Resolved]
